FAERS Safety Report 5057924-4 (Version None)
Quarter: 2006Q3

REPORT INFORMATION
  Report Type: 
  Country: None (occurrence: None)
  Receive Date: 20060721
  Receipt Date: 20060328
  Transmission Date: 20061208
  Serious: No
  Sender: FDA-Public Use
  Company Number: US-GLAXOSMITHKLINE-A0600176A

PATIENT
  Age: 63 Year
  Sex: Male
  Weight: 113.6 kg

DRUGS (3)
  1. AVANDIA [Suspect]
     Route: 048
  2. INSULIN [Concomitant]
  3. ANTI-HYPERTENSIVE [Concomitant]
     Indication: HYPERTENSION

REACTIONS (1)
  - EYE SWELLING [None]
